FAERS Safety Report 13562204 (Version 1)
Quarter: 2017Q2

REPORT INFORMATION
  Report Type: Report from Study
  Country: IN (occurrence: IN)
  Receive Date: 20170519
  Receipt Date: 20170519
  Transmission Date: 20170830
  Serious: Yes (Other)
  Sender: FDA-Public Use
  Company Number: IN-ROCHE-1936370

PATIENT

DRUGS (1)
  1. CAPECITABINE. [Suspect]
     Active Substance: CAPECITABINE
     Indication: RECTAL CANCER
     Dosage: FOR 5 DAYS A WEEK
     Route: 048

REACTIONS (6)
  - Neutropenia [Unknown]
  - Gastrointestinal disorder [Unknown]
  - Proctalgia [Unknown]
  - Palmar-plantar erythrodysaesthesia syndrome [Unknown]
  - Skin disorder [Unknown]
  - Urogenital disorder [Unknown]
